FAERS Safety Report 6138344-8 (Version None)
Quarter: 2009Q1

REPORT INFORMATION
  Report Type: 
  Country: None (occurrence: None)
  Receive Date: 20090331
  Receipt Date: 20090316
  Transmission Date: 20090719
  Serious: Yes (Other)
  Sender: FDA-Public Use
  Company Number: US-ABBOTT-09P-163-0562933-00

PATIENT
  Sex: Female

DRUGS (4)
  1. LUPRON DEPOT [Suspect]
     Indication: ENDOMETRIOSIS
     Route: 030
     Dates: start: 19890101, end: 20030101
  2. LUPRON DEPOT [Suspect]
     Route: 058
     Dates: start: 20040101, end: 20070901
  3. DURAGISIC PATCHES [Concomitant]
     Indication: BACK PAIN
  4. LORTAB [Concomitant]
     Indication: BACK PAIN

REACTIONS (2)
  - ABORTION SPONTANEOUS [None]
  - INFERTILITY FEMALE [None]
